FAERS Safety Report 18725196 (Version 1)
Quarter: 2021Q1

REPORT INFORMATION
  Report Type: Spontaneous
  Country: US (occurrence: US)
  Receive Date: 20210111
  Receipt Date: 20210111
  Transmission Date: 20210419
  Serious: No
  Sender: FDA-Public Use
  Company Number: US-ANIPHARMA-2020-US-011859

PATIENT
  Sex: Female

DRUGS (1)
  1. FLUVOXAMINE (NON?SPECIFIC) [Suspect]
     Active Substance: FLUVOXAMINE
     Indication: PRODUCT USED FOR UNKNOWN INDICATION
     Route: 065

REACTIONS (2)
  - Skin odour abnormal [Unknown]
  - Abnormal dreams [Unknown]
